FAERS Safety Report 10166504 (Version 1)
Quarter: 2014Q2

REPORT INFORMATION
  Report Type: Spontaneous
  Country: US (occurrence: None)
  Receive Date: 20140509
  Receipt Date: 20140509
  Transmission Date: 20141212
  Serious: Yes (Disabling)
  Sender: FDA-Public Use
  Company Number: None

PATIENT
  Age: 81 Year
  Sex: Female
  Weight: 68.04 kg

DRUGS (1)
  1. AVELOX [Suspect]
     Dates: start: 20130123

REACTIONS (35)
  - Muscular weakness [None]
  - Muscular weakness [None]
  - Muscular weakness [None]
  - Muscular weakness [None]
  - Burning sensation [None]
  - Hypoaesthesia [None]
  - Paraesthesia [None]
  - Pain [None]
  - Insomnia [None]
  - Gait disturbance [None]
  - Swelling [None]
  - Weight increased [None]
  - Dyspnoea [None]
  - Dysphagia [None]
  - Chest discomfort [None]
  - Throat tightness [None]
  - Dysphonia [None]
  - Chills [None]
  - Hallucination [None]
  - Mental status changes [None]
  - Mood altered [None]
  - Tendon rupture [None]
  - Peripheral swelling [None]
  - Erythema [None]
  - Weight bearing difficulty [None]
  - Movement disorder [None]
  - Palpitations [None]
  - Dizziness [None]
  - Restlessness [None]
  - Diplopia [None]
  - Confusional state [None]
  - Fatigue [None]
  - Vaginal discharge [None]
  - Vaginal odour [None]
  - Sleep disorder due to general medical condition, insomnia type [None]
